FAERS Safety Report 13150745 (Version 1)
Quarter: 2017Q1

REPORT INFORMATION
  Report Type: Spontaneous
  Country: US (occurrence: US)
  Receive Date: 20170125
  Receipt Date: 20170125
  Transmission Date: 20170428
  Serious: Yes (Hospitalization, Other)
  Sender: FDA-Public Use
  Company Number: US-GLAXOSMITHKLINE-US2017009414

PATIENT
  Age: 77 Year
  Sex: Female

DRUGS (16)
  1. SEREVENT DISKUS [Suspect]
     Active Substance: SALMETEROL XINAFOATE
     Dosage: 1 PUFF(S), BID
     Route: 055
  2. FLOVENT HFA [Suspect]
     Active Substance: FLUTICASONE PROPIONATE
     Indication: ASTHMA
     Dosage: 2 PUFF(S), BID
     Route: 055
  3. AVISTATIN [Concomitant]
  4. ASPIRIN (BABY) [Concomitant]
     Active Substance: ASPIRIN
  5. VITAMIN D [Concomitant]
     Active Substance: CHOLECALCIFEROL
  6. INCRUSE ELLIPTA [Suspect]
     Active Substance: UMECLIDINIUM BROMIDE
     Indication: ASTHMA
  7. CALTRATE WITH VITAMIN D [Concomitant]
     Active Substance: CALCIUM CARBONATE\CHOLECALCIFEROL
  8. VENTOLIN HFA [Concomitant]
     Active Substance: ALBUTEROL SULFATE
  9. TYLENOL [Concomitant]
     Active Substance: ACETAMINOPHEN
  10. ZAFIRLUKAST. [Concomitant]
     Active Substance: ZAFIRLUKAST
  11. ATORVASTATIN [Concomitant]
     Active Substance: ATORVASTATIN
  12. PROBIOTIC [Concomitant]
     Active Substance: PROBIOTICS NOS
  13. VITAMIN C [Concomitant]
     Active Substance: ASCORBIC ACID
  14. CENTRUM SILVER [Concomitant]
     Active Substance: MINERALS\VITAMINS
  15. INCRUSE ELLIPTA [Suspect]
     Active Substance: UMECLIDINIUM BROMIDE
     Indication: DYSPNOEA
     Dosage: 1 PUFF(S), 1D
     Route: 055
     Dates: start: 201612
  16. SEREVENT DISKUS [Suspect]
     Active Substance: SALMETEROL XINAFOATE
     Indication: ASTHMA
     Dosage: 2 PUFF(S), BID
     Route: 055

REACTIONS (13)
  - Malaise [Not Recovered/Not Resolved]
  - Urinary tract infection [Not Recovered/Not Resolved]
  - Cough [Recovering/Resolving]
  - Rectal prolapse [Recovered/Resolved]
  - Diarrhoea [Recovered/Resolved]
  - Wheezing [Recovering/Resolving]
  - Rectocele repair [Recovered/Resolved]
  - Overdose [Recovered/Resolved]
  - Mucosal discolouration [Not Recovered/Not Resolved]
  - Dyspnoea [Not Recovered/Not Resolved]
  - Bladder prolapse [Recovered/Resolved]
  - Product use issue [Unknown]
  - Muscle spasms [Unknown]

NARRATIVE: CASE EVENT DATE: 201612
